FAERS Safety Report 6092832-1 (Version None)
Quarter: 2009Q1

REPORT INFORMATION
  Report Type: 
  Country: None (occurrence: None)
  Receive Date: 20090225
  Receipt Date: 20090218
  Transmission Date: 20090719
  Serious: Yes (Hospitalization, Other)
  Sender: FDA-Public Use
  Company Number: US-ROXANE LABORATORIES, INC.-2009-RO-00167RO

PATIENT
  Age: 81 Year
  Sex: Male

DRUGS (6)
  1. DIGOXIN [Suspect]
     Indication: ATRIAL FIBRILLATION
  2. DIGOXIN [Suspect]
     Dosage: .25MG
     Route: 048
  3. FUROSEMIDE [Suspect]
     Dosage: 40MG
  4. AMIODARONE [Suspect]
     Indication: ATRIAL FIBRILLATION
     Route: 042
  5. AMIODARONE [Suspect]
     Dosage: 200MG
     Route: 048
  6. WARFARIN [Suspect]
     Indication: ATRIAL FIBRILLATION
     Dosage: 2MG
     Route: 048

REACTIONS (2)
  - ATELECTASIS [None]
  - THERAPEUTIC AGENT TOXICITY [None]
